FAERS Safety Report 25869243 (Version 1)
Quarter: 2025Q4

REPORT INFORMATION
  Report Type: Spontaneous
  Country: US (occurrence: US)
  Receive Date: 20251001
  Receipt Date: 20251001
  Transmission Date: 20260118
  Serious: No
  Sender: GRIFOLS
  Company Number: US-IGSA-BIG0038314

PATIENT
  Age: 64 Year
  Sex: Female
  Weight: 88.9 kg

DRUGS (23)
  1. GAMUNEX-C [Suspect]
     Active Substance: HUMAN IMMUNOGLOBULIN G
     Indication: Myasthenia gravis
     Dosage: 60 GRAM, QD
     Route: 042
     Dates: start: 20250915
  2. GAMUNEX-C [Suspect]
     Active Substance: HUMAN IMMUNOGLOBULIN G
     Indication: Off label use
  3. LIDODERM [Concomitant]
     Active Substance: LIDOCAINE
     Dosage: UNK UNK, QD
     Route: 061
  4. MOBIC [Concomitant]
     Active Substance: MELOXICAM
     Dosage: 15 MILLIGRAM, QD
     Route: 048
  5. ROBAXIN [Concomitant]
     Active Substance: METHOCARBAMOL
     Dosage: 500 MILLIGRAM, QD
  6. NARCAN [Concomitant]
     Active Substance: NALOXONE HYDROCHLORIDE
     Dosage: 4 MG/0.1 ML
     Route: 045
  7. MESTINON [Concomitant]
     Active Substance: PYRIDOSTIGMINE BROMIDE
     Dosage: 90 MILLIGRAM, QID
     Route: 048
  8. MAXALT [Concomitant]
     Active Substance: RIZATRIPTAN BENZOATE
     Dosage: 10 MILLIGRAM, BID
  9. SYNTHROID [Concomitant]
     Active Substance: LEVOTHYROXINE SODIUM
     Dosage: 50 MICROGRAM, QD
     Route: 048
  10. ZANAFLEX [Concomitant]
     Active Substance: TIZANIDINE HYDROCHLORIDE
     Dosage: 4 MILLIGRAM, QD
  11. DESYREL [Concomitant]
     Active Substance: TRAZODONE HYDROCHLORIDE
     Dosage: 50 MILLIGRAM, QD
  12. METHOTREXATE [Concomitant]
     Active Substance: METHOTREXATE
     Dosage: 20 MILLIGRAM, Q.WK.
     Route: 048
  13. ZOVIRAX [Concomitant]
     Active Substance: ACYCLOVIR
     Dosage: 1 UNKNOWN, PRN
     Route: 061
  14. CALCIUM CARBONATE\VITAMIN D [Concomitant]
     Active Substance: CALCIUM CARBONATE\VITAMIN D
     Dosage: 1 UNKNOWN, QD
     Route: 048
  15. REFRESH PLUS [Concomitant]
     Active Substance: CARBOXYMETHYLCELLULOSE SODIUM
     Indication: Dry eye
     Dosage: 1 UNKNOWN, PRN
     Route: 047
  16. VITAMIN D3 [Concomitant]
     Active Substance: CHOLECALCIFEROL
     Dosage: 25 MICROGRAM, QD
     Route: 048
  17. CELEXA [Concomitant]
     Active Substance: CITALOPRAM HYDROBROMIDE
     Dosage: 20 MILLIGRAM, QD
     Route: 048
  18. TEMOVATE [Concomitant]
     Active Substance: CLOBETASOL PROPIONATE
     Dosage: 1 UNKNOWN, BID
     Route: 061
  19. FOLVITE [Concomitant]
     Active Substance: FOLIC ACID
     Dosage: 1 MILLIGRAM, QD
     Route: 048
  20. GABAPENTIN [Concomitant]
     Active Substance: GABAPENTIN
     Dosage: 600  MILLIGRAM, Q
     Route: 048
  21. EMGALITY [Concomitant]
     Active Substance: GALCANEZUMAB-GNLM
     Dosage: 120 MILLIGRAM
     Route: 058
  22. NORCO [Concomitant]
     Active Substance: ACETAMINOPHEN\HYDROCODONE BITARTRATE
     Indication: Pain
     Dosage: 1 UNKNOWN, Q.6H.
     Route: 048
  23. ATARAX P [HYDROXYZINE HYDROCHLORIDE] [Concomitant]
     Dosage: 25 MILLIGRAM
     Route: 048

REACTIONS (4)
  - Urticaria [Recovered/Resolved]
  - Lip swelling [Recovered/Resolved]
  - Skin warm [Recovered/Resolved]
  - Pruritus [Recovered/Resolved]

NARRATIVE: CASE EVENT DATE: 20250915
